FAERS Safety Report 23602881 (Version 2)
Quarter: 2024Q2

REPORT INFORMATION
  Report Type: Spontaneous
  Country: DE (occurrence: DE)
  Receive Date: 20240306
  Receipt Date: 20240423
  Transmission Date: 20240716
  Serious: Yes (Other)
  Sender: FDA-Public Use
  Company Number: DE-002147023-NVSC2024DE042843

PATIENT
  Age: 50 Year
  Sex: Female

DRUGS (2)
  1. AIMOVIG [Suspect]
     Active Substance: ERENUMAB-AOOE
     Indication: Migraine with aura
     Dosage: 70 MG, QMO
     Route: 058
     Dates: start: 20231114
  2. AIMOVIG [Suspect]
     Active Substance: ERENUMAB-AOOE
     Dosage: 70 MILLIGRAM
     Route: 058
     Dates: start: 20240217, end: 20240217

REACTIONS (10)
  - Swelling [Recovered/Resolved]
  - Oedema [Recovered/Resolved]
  - Type I hypersensitivity [Recovered/Resolved]
  - Rash [Recovered/Resolved]
  - Urticaria [Unknown]
  - Pruritus [Unknown]
  - Skin disorder [Unknown]
  - Flushing [Unknown]
  - Allergic oedema [Unknown]
  - Erythema [Unknown]

NARRATIVE: CASE EVENT DATE: 20240217
